FAERS Safety Report 24678091 (Version 1)
Quarter: 2024Q4

REPORT INFORMATION
  Report Type: Spontaneous
  Country: FR (occurrence: FR)
  Receive Date: 20241129
  Receipt Date: 20241129
  Transmission Date: 20250115
  Serious: Yes (Life-Threatening, Hospitalization, Other)
  Sender: SANDOZ
  Company Number: FR-SANDOZ-SDZ2024FR098132

PATIENT
  Age: 59 Year
  Sex: Male

DRUGS (1)
  1. DOXYCYCLINE [Suspect]
     Active Substance: DOXYCYCLINE
     Indication: Infection parasitic
     Dosage: UNK
     Route: 065

REACTIONS (5)
  - Eosinophilic myocarditis [Recovered/Resolved]
  - Cardiogenic shock [Recovered/Resolved]
  - Toxicity to various agents [Unknown]
  - Drug hypersensitivity [Unknown]
  - Eosinophilia [Recovered/Resolved]
